FAERS Safety Report 10285858 (Version 1)
Quarter: 2014Q3

REPORT INFORMATION
  Report Type: Other
  Country: US (occurrence: US)
  Receive Date: 20140709
  Receipt Date: 20140709
  Transmission Date: 20150326
  Serious: Yes (Death, Other)
  Sender: FDA-Public Use
  Company Number: US-SHIRE-US201403543

PATIENT
  Age: 65 Year
  Sex: Male

DRUGS (1)
  1. PENTASA [Suspect]
     Active Substance: MESALAMINE
     Indication: PRODUCT USED FOR UNKNOWN INDICATION
     Dosage: 500 MG, OTHER (8 TIMES PER DAY)
     Route: 048
     Dates: start: 201403, end: 20140622

REACTIONS (4)
  - Death [Fatal]
  - Inappropriate schedule of drug administration [Recovered/Resolved]
  - Gastric cancer [Unknown]
  - Crohn^s disease [Unknown]

NARRATIVE: CASE EVENT DATE: 201403
